FAERS Safety Report 7728464-6 (Version None)
Quarter: 2011Q3

REPORT INFORMATION
  Report Type: 
  Country: None (occurrence: None)
  Receive Date: 20110905
  Receipt Date: 20110809
  Transmission Date: 20111222
  Serious: No
  Sender: FDA-Public Use
  Company Number: US-ROXANE LABORATORIES, INC.-2011-RO-01132RO

PATIENT
  Sex: Female

DRUGS (1)
  1. FLUTICASONE PROPIONATE [Suspect]
     Indication: HYPERSENSITIVITY
     Route: 045

REACTIONS (2)
  - NASAL DISCOMFORT [None]
  - PRODUCT PACKAGING ISSUE [None]
